FAERS Safety Report 7374623-4 (Version None)
Quarter: 2011Q1

REPORT INFORMATION
  Report Type: 
  Country: None (occurrence: None)
  Receive Date: 20110325
  Receipt Date: 20100607
  Transmission Date: 20110831
  Serious: No
  Sender: FDA-Public Use
  Company Number: US-MYLANLABS-2010S1008582

PATIENT
  Age: 46 Year
  Sex: Female
  Weight: 77.11 kg

DRUGS (4)
  1. FENTANYL-100 [Suspect]
     Dosage: CHANGES PATCHES Q 48 HOURS
     Route: 062
     Dates: end: 20100401
  2. FENTANYL-100 [Suspect]
     Indication: NECK PAIN
     Dosage: CHANGES PATCHES Q 48 HOURS
     Route: 062
     Dates: end: 20100401
  3. FENTANYL-100 [Suspect]
     Indication: BACK PAIN
     Dosage: CHANGES PATCHES Q 48 HOURS
     Route: 062
     Dates: end: 20100401
  4. FENTANYL-100 [Suspect]
     Indication: HEADACHE
     Dosage: CHANGES PATCHES Q 48 HOURS
     Route: 062
     Dates: end: 20100401

REACTIONS (6)
  - APPLICATION SITE VESICLES [None]
  - APPLICATION SITE DISCHARGE [None]
  - APPLICATION SITE PRURITUS [None]
  - APPLICATION SITE SCAR [None]
  - LACERATION [None]
  - APPLICATION SITE BURN [None]
